FAERS Safety Report 7068558-4 (Version None)
Quarter: 2010Q4

REPORT INFORMATION
  Report Type: 
  Country: None (occurrence: None)
  Receive Date: 20101028
  Receipt Date: 20100921
  Transmission Date: 20110411
  Serious: Yes (Other)
  Sender: FDA-Public Use
  Company Number: PHHY2010BR71980

PATIENT
  Age: 56 Year
  Sex: Male

DRUGS (7)
  1. VALSARTAN, AMLODIPINE [Suspect]
     Dosage: 160/5 MG
  2. HYDROCHLOROTHIAZIDE [Suspect]
     Dosage: 25 MG
  3. CAPTOPRIL [Concomitant]
     Dosage: 150 MG
  4. AMLODIPINE [Concomitant]
     Dosage: 10 MG
  5. ATENOLOL [Concomitant]
     Dosage: 25 MG
  6. ASPIRIN [Concomitant]
     Dosage: 200 MG
  7. SIMVASTATIN [Concomitant]
     Dosage: 40 MG

REACTIONS (3)
  - ANGINA PECTORIS [None]
  - BLOOD PRESSURE INADEQUATELY CONTROLLED [None]
  - CARDIAC VALVE DISEASE [None]
